FAERS Safety Report 8796207 (Version 1)
Quarter: 2012Q4

REPORT INFORMATION
  Report Type: 
  Country: DE (occurrence: DE)
  Receive Date: 20120919
  Receipt Date: 20120919
  Transmission Date: 20130627
  Serious: Yes (Other)
  Sender: FDA-Public Use
  Company Number: DE-WATSON-2012-15774

PATIENT
  Sex: Male
  Weight: 3.16 kg

DRUGS (3)
  1. UTROGEST [Concomitant]
     Indication: THREATENED LABOUR
     Dosage: 200 [mg/d ]
     Route: 064
     Dates: start: 20100625
  2. FLUOXETINE HYDROCHLORIDE [Suspect]
     Indication: BORDERLINE PERSONALITY DISORDER
     Dosage: ^40 [mg/d ]/ slow dosage reduction until 10 mg and then stop shortly before delivery^
     Route: 064
     Dates: start: 20091113, end: 20100807
  3. FOLIC ACID [Concomitant]
     Indication: PROPHYLAXIS OF NEURAL TUBE DEFECT
     Dosage: 0,8 [mg/d ]
     Route: 064

REACTIONS (1)
  - Atrial septal defect [Not Recovered/Not Resolved]
